FAERS Safety Report 10885441 (Version 1)
Quarter: 2015Q1

REPORT INFORMATION
  Report Type: Spontaneous
  Country: US (occurrence: None)
  Receive Date: 20150227
  Receipt Date: 20150227
  Transmission Date: 20150721
  Serious: No
  Sender: FDA-Public Use
  Company Number: None

PATIENT
  Age: 84 Year
  Sex: Male
  Weight: 117.1 kg

DRUGS (1)
  1. DORIPENEM [Suspect]
     Active Substance: DORIPENEM
     Indication: URINARY TRACT INFECTION
     Route: 042
     Dates: start: 20150110, end: 20150126

REACTIONS (5)
  - Urticaria [None]
  - Rash maculo-papular [None]
  - Rash pruritic [None]
  - Eosinophilia [None]
  - Acarodermatitis [None]

NARRATIVE: CASE EVENT DATE: 20150209
